FAERS Safety Report 7862923-0 (Version None)
Quarter: 2011Q4

REPORT INFORMATION
  Report Type: 
  Country: None (occurrence: None)
  Receive Date: 20111027
  Receipt Date: 20101119
  Transmission Date: 20120403
  Serious: No
  Sender: FDA-Public Use
  Company Number: US-AMGEN-USASP2010005965

PATIENT
  Sex: Female

DRUGS (2)
  1. ENBREL [Suspect]
     Indication: RHEUMATOID ARTHRITIS
     Dates: start: 20020101
  2. GOLIMUMAB [Concomitant]
     Dosage: UNK
     Dates: end: 20100101

REACTIONS (3)
  - MUSCULOSKELETAL STIFFNESS [None]
  - HYPOKINESIA [None]
  - PAIN [None]
